FAERS Safety Report 22770230 (Version 3)
Quarter: 2024Q4

REPORT INFORMATION
  Report Type: Spontaneous
  Country: EG (occurrence: EG)
  Receive Date: 20230801
  Receipt Date: 20241021
  Transmission Date: 20250114
  Serious: Yes (Other)
  Sender: SANDOZ
  Company Number: EG-002147023-NVSC2022EG248571

PATIENT
  Age: 54 Year
  Sex: Female
  Weight: 84 kg

DRUGS (18)
  1. FEMARA [Suspect]
     Active Substance: LETROZOLE
     Indication: Metastases to bone
     Dosage: 1 DOSAGE FORM, QD
     Route: 048
     Dates: start: 20220501
  2. FEMARA [Suspect]
     Active Substance: LETROZOLE
     Indication: Metastases to central nervous system
     Dosage: 1 DOSAGE FORM, QD
     Route: 048
     Dates: start: 202206
  3. FEMARA [Suspect]
     Active Substance: LETROZOLE
     Indication: Breast cancer metastatic
  4. FEMARA [Suspect]
     Active Substance: LETROZOLE
     Indication: Metastases to kidney
  5. FEMARA [Suspect]
     Active Substance: LETROZOLE
     Indication: Metastases to lung
  6. KISQALI [Suspect]
     Active Substance: RIBOCICLIB
     Dosage: 600 MG, QD, 3 TABLETS ONCE DAILY FOR 21DAYS AND ONE WEEK OFF
     Route: 048
     Dates: start: 202406
  7. KISQALI [Suspect]
     Active Substance: RIBOCICLIB
     Indication: Metastases to central nervous system
     Dosage: 3 DOSAGE FORM, QD (FOR 21 DAYS AND ONE WEEK OFF)
     Route: 048
     Dates: start: 20220501
  8. KISQALI [Suspect]
     Active Substance: RIBOCICLIB
     Indication: Metastases to kidney
     Dosage: 3 DOSAGE FORM, QD (FOR 21 DAYS AND ONE WEEK OFF)
     Route: 048
     Dates: start: 20220501
  9. KISQALI [Suspect]
     Active Substance: RIBOCICLIB
     Indication: Breast cancer metastatic
     Dosage: 3 DOSAGE FORM, QD (FOR 21 DAYS AND 1 WEEK OFF)
     Route: 048
     Dates: start: 202206
  10. KISQALI [Suspect]
     Active Substance: RIBOCICLIB
     Indication: Metastases to lung
     Dosage: 3 DOSAGE FORM, QD (FOR 21 DAYS AND 1 WEEK OFF)
     Route: 048
     Dates: start: 202206
  11. KISQALI [Suspect]
     Active Substance: RIBOCICLIB
     Indication: Metastases to bone
     Dosage: 200 MG
     Route: 048
  12. ZOMETA [Suspect]
     Active Substance: ZOLEDRONIC ACID
     Indication: Bone disorder
     Dosage: 1 DOSAGE FORM, EVERY 28 DAYS(1 INJECTION)
     Route: 065
     Dates: start: 202206
  13. ZOMETA [Suspect]
     Active Substance: ZOLEDRONIC ACID
     Dosage: UNK (EVERY MONTH AND THEN EVERY 2 MONTHS)
     Route: 065
     Dates: start: 20220702
  14. CALCIUM [Concomitant]
     Active Substance: CALCIUM
     Indication: Product used for unknown indication
     Dosage: UNK
     Route: 065
  15. CORTISONE [Concomitant]
     Active Substance: CORTISONE
     Dosage: 1 DOSAGE FORM, QD
     Route: 065
     Dates: start: 202209, end: 20221015
  16. CORTISONE [Concomitant]
     Active Substance: CORTISONE
     Indication: Product used for unknown indication
     Dosage: 8 MG TABLET
     Route: 048
  17. IRON [Concomitant]
     Active Substance: IRON
     Indication: Product used for unknown indication
     Dosage: 1 DOSAGE FORM (TABLET), QD
     Route: 065
     Dates: start: 202205
  18. VITAMIN D [Concomitant]
     Active Substance: VITAMIN D NOS
     Indication: Product used for unknown indication
     Dosage: UNK
     Route: 065

REACTIONS (25)
  - Decreased immune responsiveness [Recovering/Resolving]
  - Haematemesis [Recovering/Resolving]
  - Platelet count decreased [Recovering/Resolving]
  - Epistaxis [Recovering/Resolving]
  - Cataract [Not Recovered/Not Resolved]
  - Retinal injury [Not Recovered/Not Resolved]
  - Blindness [Not Recovered/Not Resolved]
  - Metastases to spine [Recovering/Resolving]
  - Haemoglobin decreased [Recovering/Resolving]
  - Ocular hypertension [Unknown]
  - Nausea [Not Recovered/Not Resolved]
  - Dizziness [Not Recovered/Not Resolved]
  - Decreased appetite [Not Recovered/Not Resolved]
  - Constipation [Recovering/Resolving]
  - Anal fistula [Recovering/Resolving]
  - Macrocytosis [Unknown]
  - General physical condition abnormal [Unknown]
  - Fibrosis [Unknown]
  - Hypotension [Not Recovered/Not Resolved]
  - Gastrointestinal disorder [Unknown]
  - Movement disorder [Unknown]
  - Diarrhoea [Unknown]
  - Product dose omission issue [Unknown]
  - Fatigue [Unknown]
  - Feeling abnormal [Unknown]

NARRATIVE: CASE EVENT DATE: 20220501
